FAERS Safety Report 9040298 (Version 1)
Quarter: 2013Q1

REPORT INFORMATION
  Report Type: Report from Study
  Country: US (occurrence: US)
  Receive Date: 20130129
  Receipt Date: 20130129
  Transmission Date: 20140127
  Serious: No
  Sender: FDA-Public Use
  Company Number: US-ABBOTT-11P-163-0882023-00

PATIENT
  Sex: Female
  Weight: 61.29 kg

DRUGS (11)
  1. HUMIRA 40 MG/0.8 ML PEN [Suspect]
     Indication: RHEUMATOID ARTHRITIS
     Route: 058
     Dates: start: 20111205, end: 20120102
  2. PLAVIX [Concomitant]
     Indication: CORONARY ARTERIAL STENT INSERTION
     Dosage: DAILY
  3. ASA [Concomitant]
     Indication: STENT PLACEMENT
     Dosage: LOW DOSE
  4. ATENOLOL [Concomitant]
     Indication: HYPERTENSION
     Dosage: 1/2 PER DAY
  5. ATENOLOL [Concomitant]
     Indication: CHEST PAIN
  6. FISH OIL [Concomitant]
     Indication: PRODUCT USED FOR UNKNOWN INDICATION
     Dosage: ONCE A DAY
  7. CITRACAL [Concomitant]
     Indication: PRODUCT USED FOR UNKNOWN INDICATION
     Dosage: ONCE A DAY
  8. MULTIVITAMIN [Concomitant]
     Indication: PRODUCT USED FOR UNKNOWN INDICATION
     Dosage: ONCE A DAY
  9. PROTONIX [Concomitant]
     Indication: ABDOMINAL DISCOMFORT
     Dosage: ONCE A DAY BUT DON^T USE IT EVERY DAY
  10. MIRALAX [Concomitant]
     Indication: CONSTIPATION
     Dosage: PRN
  11. STOOL SOFTENER [Concomitant]
     Indication: CONSTIPATION
     Dosage: PRN

REACTIONS (11)
  - Abdominal discomfort [Not Recovered/Not Resolved]
  - Headache [Not Recovered/Not Resolved]
  - Feeling cold [Not Recovered/Not Resolved]
  - Abdominal distension [Not Recovered/Not Resolved]
  - Fatigue [Not Recovered/Not Resolved]
  - Joint swelling [Not Recovered/Not Resolved]
  - Drug ineffective [Not Recovered/Not Resolved]
  - Nausea [Recovering/Resolving]
  - Injection site bruising [Recovered/Resolved]
  - Pain [Not Recovered/Not Resolved]
  - Malaise [Not Recovered/Not Resolved]
